FAERS Safety Report 7135799-7 (Version None)
Quarter: 2010Q4

REPORT INFORMATION
  Report Type: 
  Country: None (occurrence: None)
  Receive Date: 20101203
  Receipt Date: 20101123
  Transmission Date: 20110411
  Serious: Yes (Life-Threatening, Hospitalization)
  Sender: FDA-Public Use
  Company Number: CA-MERCK-1011USA03408

PATIENT
  Age: 30 Year
  Sex: Female

DRUGS (6)
  1. EMEND [Suspect]
     Indication: PROPHYLAXIS OF NAUSEA AND VOMITING
     Route: 048
     Dates: start: 20101001, end: 20101001
  2. EMEND [Suspect]
     Route: 048
     Dates: start: 20101001, end: 20101001
  3. EMEND [Suspect]
     Route: 048
     Dates: start: 20101001, end: 20101001
  4. DECADRON [Suspect]
     Route: 048
  5. STEMETIL [Concomitant]
     Indication: BREAST CANCER
     Route: 065
     Dates: start: 20100801, end: 20101101
  6. ZOFRAN [Concomitant]
     Indication: BREAST CANCER
     Route: 065
     Dates: start: 20100801, end: 20101101

REACTIONS (1)
  - DIABETIC HYPERGLYCAEMIC COMA [None]
